FAERS Safety Report 5567746-3 (Version None)
Quarter: 2007Q4

REPORT INFORMATION
  Report Type: 
  Country: None (occurrence: None)
  Receive Date: 20071218
  Receipt Date: 20071127
  Transmission Date: 20080405
  Serious: Yes (Hospitalization)
  Sender: FDA-Public Use
  Company Number: WAES 0711USA04882

PATIENT
  Age: 32 Year
  Sex: Male

DRUGS (3)
  1. INDOMETHACIN [Suspect]
     Indication: ANKYLOSING SPONDYLITIS
     Dosage: PO
     Route: 048
  2. INJ ADALIMUMAB [Suspect]
     Indication: ANKYLOSING SPONDYLITIS
     Dosage: 40 MG/Q2W, SC
     Route: 058
     Dates: start: 20060901
  3. PREDNISONE [Concomitant]

REACTIONS (5)
  - ANKYLOSING SPONDYLITIS [None]
  - CONDITION AGGRAVATED [None]
  - GASTROINTESTINAL HAEMORRHAGE [None]
  - INJECTION SITE ERYTHEMA [None]
  - INJECTION SITE REACTION [None]
